FAERS Safety Report 7224561-2 (Version None)
Quarter: 2011Q1

REPORT INFORMATION
  Report Type: 
  Country: None (occurrence: None)
  Receive Date: 20110113
  Receipt Date: 20110105
  Transmission Date: 20110831
  Serious: Yes (Hospitalization, Other)
  Sender: FDA-Public Use
  Company Number: US-JNJFOC-20100704618

PATIENT
  Sex: Male

DRUGS (3)
  1. LEVAQUIN [Suspect]
     Indication: SEPSIS
     Route: 048
  2. LEVAQUIN [Suspect]
     Indication: PRODUCT USED FOR UNKNOWN INDICATION
     Route: 042
  3. LEVAQUIN [Suspect]
     Indication: INFECTION
     Route: 048

REACTIONS (3)
  - TENDON RUPTURE [None]
  - CARTILAGE INJURY [None]
  - ROTATOR CUFF SYNDROME [None]
